FAERS Safety Report 4973959-1 (Version None)
Quarter: 2006Q2

REPORT INFORMATION
  Report Type: 
  Country: None (occurrence: None)
  Receive Date: 20060410
  Receipt Date: 20060321
  Transmission Date: 20061013
  Serious: No
  Sender: FDA-Public Use
  Company Number: USA0508106968

PATIENT
  Age: 75 Year
  Sex: Female
  Weight: 76.6 kg

DRUGS (9)
  1. FORTEO [Suspect]
     Indication: OSTEOPOROSIS
     Dates: start: 20050830, end: 20050101
  2. FORTEO [Suspect]
     Indication: OSTEOPOROSIS
     Dates: start: 20050101, end: 20050828
  3. FORTEO PEN, 250MCG/ML(3ML) (FORTEO PEN 250MCG/ML (3ML) PEN, DISPOSABLE [Concomitant]
  4. CARDURA [Concomitant]
  5. CLONIDINE [Concomitant]
  6. MICARDIS [Concomitant]
  7. CALCIUM GLUCONATE [Concomitant]
  8. ERGOCALCIFEROL (VITAMIN D) (ERGOCALCIFEROL (VITAMIN) UNKNOWN FORMULATI [Concomitant]
  9. CHONDROITIN SULFATE [Concomitant]

REACTIONS (30)
  - ATRIOVENTRICULAR BLOCK FIRST DEGREE [None]
  - AZOTAEMIA [None]
  - BLOOD ALKALINE PHOSPHATASE INCREASED [None]
  - BLOOD CHOLESTEROL INCREASED [None]
  - BLOOD GLUCOSE INCREASED [None]
  - CARDIAC MURMUR [None]
  - CAROTID BRUIT [None]
  - DEHYDRATION [None]
  - DRUG DOSE OMISSION [None]
  - DRUG INTOLERANCE [None]
  - DYSPHORIA [None]
  - FEELING ABNORMAL [None]
  - GLUCOSE URINE PRESENT [None]
  - HAEMATOCRIT DECREASED [None]
  - HEADACHE [None]
  - HYPERGLYCAEMIA [None]
  - HYPERTENSION [None]
  - HYPOCALCAEMIA [None]
  - IDIOSYNCRATIC DRUG REACTION [None]
  - IRRITABLE BOWEL SYNDROME [None]
  - LIGAMENT INJURY [None]
  - MUSCLE SPASMS [None]
  - MYALGIA [None]
  - PAIN [None]
  - PHARMACEUTICAL PRODUCT COMPLAINT [None]
  - PROTEIN URINE PRESENT [None]
  - SCREAMING [None]
  - SINUS DISORDER [None]
  - TREMOR [None]
  - WHITE BLOOD CELL COUNT DECREASED [None]
